FAERS Safety Report 8883300 (Version 2)
Quarter: 2012Q4

REPORT INFORMATION
  Report Type: 
  Country: US (occurrence: US)
  Receive Date: 20121102
  Receipt Date: 20121203
  Transmission Date: 20130627
  Serious: Yes (Hospitalization)
  Sender: FDA-Public Use
  Company Number: US-PFIZER INC-2012269428

PATIENT
  Age: 63 Year
  Sex: Female
  Weight: 58.5 kg

DRUGS (4)
  1. LYRICA [Suspect]
     Indication: FIBROMYALGIA
     Dosage: 300 mg, 2x/day
     Route: 048
     Dates: start: 2010
  2. PROTONIX [Suspect]
     Indication: GASTROOESOPHAGEAL REFLUX DISEASE
     Dosage: 40 mg, 2x/day
     Dates: start: 2006
  3. ALPRAZOLAM [Concomitant]
     Indication: ANXIETY
     Dosage: 2 mg, daily
  4. OXYCODONE [Concomitant]
     Indication: PAIN STOMACH
     Dosage: 10mg/325mg

REACTIONS (3)
  - Oesophageal disorder [Unknown]
  - Gastric disorder [Unknown]
  - Chest pain [Unknown]
